FAERS Safety Report 8012629-2 (Version None)
Quarter: 2011Q4

REPORT INFORMATION
  Report Type: 
  Country: None (occurrence: None)
  Receive Date: 20111229
  Receipt Date: 20111220
  Transmission Date: 20120403
  Serious: Yes (Other)
  Sender: FDA-Public Use
  Company Number: SE-JNJFOC-20111209043

PATIENT
  Age: 56 Year
  Sex: Male

DRUGS (3)
  1. NAPROXEN [Concomitant]
     Route: 065
  2. METOPROLOL SUCCINATE [Concomitant]
     Route: 065
  3. REMICADE [Suspect]
     Indication: ANKYLOSING SPONDYLITIS
     Route: 042
     Dates: start: 20080101, end: 20110101

REACTIONS (6)
  - ANKYLOSING SPONDYLITIS [None]
  - DRUG SPECIFIC ANTIBODY PRESENT [None]
  - DRUG EFFECT DECREASED [None]
  - THERAPEUTIC RESPONSE DECREASED [None]
  - CORONARY ARTERY BYPASS [None]
  - IRITIS [None]
